FAERS Safety Report 9570798 (Version 1)
Quarter: 2013Q3

REPORT INFORMATION
  Report Type: Spontaneous
  Country: US (occurrence: None)
  Receive Date: 20130926
  Receipt Date: 20130926
  Transmission Date: 20140515
  Serious: Yes (Disabling)
  Sender: FDA-Public Use
  Company Number: None

PATIENT
  Age: 28 Year
  Sex: Female
  Weight: 54.43 kg

DRUGS (1)
  1. LEVOFLOXACIN [Suspect]
     Indication: URINARY TRACT INFECTION
     Dosage: 5 ONCE DAILY TAKEN BY MOUTH
     Route: 048

REACTIONS (4)
  - Neuropathy peripheral [None]
  - Abasia [None]
  - Poisoning [None]
  - Feeling abnormal [None]
